FAERS Safety Report 16803769 (Version 1)
Quarter: 2019Q3

REPORT INFORMATION
  Report Type: Spontaneous
  Country: FR (occurrence: FR)
  Receive Date: 20190913
  Receipt Date: 20190913
  Transmission Date: 20191005
  Serious: Yes (Other)
  Sender: FDA-Public Use
  Company Number: FR-ORION CORPORATION ORION PHARMA-19_00006996

PATIENT
  Age: 14 Year
  Sex: Male
  Weight: 67.8 kg

DRUGS (3)
  1. SPECIAFOLDINE [Suspect]
     Active Substance: FOLIC ACID
     Indication: PROPHYLAXIS
     Dosage: 5 MG
     Route: 048
     Dates: start: 201609
  2. HUMIRA [Suspect]
     Active Substance: ADALIMUMAB
     Indication: STILL^S DISEASE
     Route: 058
     Dates: start: 201701
  3. IMETH [Suspect]
     Active Substance: METHOTREXATE SODIUM
     Indication: STILL^S DISEASE
     Route: 048
     Dates: start: 201609

REACTIONS (2)
  - Skin papilloma [Not Recovered/Not Resolved]
  - Eczema [Not Recovered/Not Resolved]

NARRATIVE: CASE EVENT DATE: 201701
